FAERS Safety Report 8405597 (Version 3)
Quarter: 2015Q2

REPORT INFORMATION
  Report Type: Spontaneous
  Country: US (occurrence: US)
  Receive Date: 20120214
  Receipt Date: 20150528
  Transmission Date: 20150821
  Serious: Yes (Congenital Anomaly, Other)
  Sender: FDA-Public Use
  Company Number: US-ELI_LILLY_AND_COMPANY-US201202000669

PATIENT

DRUGS (1)
  1. PROZAC [Suspect]
     Active Substance: FLUOXETINE HYDROCHLORIDE
     Indication: PRODUCT USED FOR UNKNOWN INDICATION
     Dosage: UNK UNK, UNKNOWN
     Route: 064

REACTIONS (5)
  - Cleft lip and palate [Unknown]
  - Foetal hypokinesia [Recovered/Resolved]
  - Apgar score low [Recovered/Resolved]
  - Meconium in amniotic fluid [Unknown]
  - Foetal exposure during pregnancy [Recovered/Resolved]
